FAERS Safety Report 20670870 (Version 2)
Quarter: 2022Q2

REPORT INFORMATION
  Report Type: Spontaneous
  Country: US (occurrence: US)
  Receive Date: 20220404
  Receipt Date: 20220506
  Transmission Date: 20220720
  Serious: Yes (Other)
  Sender: FDA-Public Use
  Company Number: US-ELI_LILLY_AND_COMPANY-US202204000273

PATIENT
  Sex: Female
  Weight: 98.9 kg

DRUGS (2)
  1. TRULICITY [Suspect]
     Active Substance: DULAGLUTIDE
     Indication: Diabetes mellitus
     Dosage: 1.5 MG, UNKNOWN
     Route: 065
     Dates: start: 2020
  2. TRULICITY [Suspect]
     Active Substance: DULAGLUTIDE
     Dosage: 3 MG, WEEKLY (1/W)
     Route: 065
     Dates: start: 202102, end: 20220311

REACTIONS (4)
  - Pancreatitis [Recovered/Resolved]
  - Pancreatic enzymes increased [Recovered/Resolved]
  - Abdominal pain [Recovered/Resolved]
  - Glycosylated haemoglobin increased [Unknown]
